FAERS Safety Report 17743303 (Version 1)
Quarter: 2020Q2

REPORT INFORMATION
  Report Type: Spontaneous
  Country: IT (occurrence: IT)
  Receive Date: 20200504
  Receipt Date: 20200504
  Transmission Date: 20200714
  Serious: Yes (Other)
  Sender: FDA-Public Use
  Company Number: IT-MYLANLABS-2020M1043269

PATIENT
  Age: 9 Year
  Sex: Male

DRUGS (2)
  1. IMATINIB. [Suspect]
     Active Substance: IMATINIB MESYLATE
     Indication: CHRONIC MYELOID LEUKAEMIA
     Dosage: 340 MG/M2, QD (3 WEEKS ON AND ONE WEEK OFF, ON/OFF SCHEDULE)
  2. IMATINIB. [Suspect]
     Active Substance: IMATINIB MESYLATE
     Dosage: 340 MG/M2, QD CONTINUOUS

REACTIONS (5)
  - Bone metabolism disorder [Recovering/Resolving]
  - Drug abuse [Unknown]
  - Rebound effect [Recovered/Resolved]
  - Chronic myeloid leukaemia [Recovered/Resolved]
  - Growth retardation [Recovering/Resolving]
